FAERS Safety Report 4721940-X (Version None)
Quarter: 2005Q3

REPORT INFORMATION
  Report Type: 
  Country: None (occurrence: None)
  Receive Date: 20050722
  Receipt Date: 20050714
  Transmission Date: 20060218
  Serious: Yes (Other)
  Sender: FDA-Public Use
  Company Number: PHNR2005AU01112

PATIENT
  Age: 47 Year
  Sex: Male

DRUGS (2)
  1. AREDIA [Suspect]
     Indication: MULTIPLE MYELOMA
     Dosage: 90 MG, QMO
     Dates: start: 19970501, end: 20030501
  2. BONEFOS ^AVENTIS PHARMA^ [Suspect]
     Dosage: 800 MG, BID
     Dates: start: 20040201, end: 20050301

REACTIONS (4)
  - ASEPTIC NECROSIS BONE [None]
  - BONE EROSION [None]
  - OSTEOSCLEROSIS [None]
  - PAIN IN JAW [None]
